FAERS Safety Report 8797651 (Version 1)
Quarter: 2012Q4

REPORT INFORMATION
  Report Type: 
  Country: FR (occurrence: FR)
  Receive Date: 20120920
  Receipt Date: 20120920
  Transmission Date: 20130627
  Serious: Yes (Other)
  Sender: FDA-Public Use
  Company Number: FR-009507513-1209FRA006239

PATIENT
  Age: 74 Year
  Sex: Female

DRUGS (2)
  1. INVANZ [Suspect]
     Dosage: 1 g, qd
     Route: 030
     Dates: start: 20120719
  2. HYDROCORTISONE [Concomitant]
     Dosage: 30 mg, qd

REACTIONS (1)
  - Hypokalaemia [Recovered/Resolved]
